FAERS Safety Report 16956401 (Version 1)
Quarter: 2019Q4

REPORT INFORMATION
  Report Type: Spontaneous
  Country: DE (occurrence: DE)
  Receive Date: 20191024
  Receipt Date: 20191024
  Transmission Date: 20200122
  Serious: Yes (Death, Hospitalization, Other)
  Sender: FDA-Public Use
  Company Number: DE-PFIZER INC-2019457459

PATIENT
  Age: 80 Year
  Sex: Male

DRUGS (5)
  1. DOCETAXEL. [Suspect]
     Active Substance: DOCETAXEL
     Indication: ADENOCARCINOMA
     Dosage: UNK
     Route: 065
     Dates: start: 201708, end: 201710
  2. VARGATEF [Suspect]
     Active Substance: NINTEDANIB
     Indication: ADENOCARCINOMA
     Dosage: 400 MG, 1X/DAY
     Route: 065
     Dates: start: 201708
  3. VARGATEF [Suspect]
     Active Substance: NINTEDANIB
     Dosage: 300 MG, 1X/DAY
     Route: 065
     Dates: start: 201709
  4. VARGATEF [Suspect]
     Active Substance: NINTEDANIB
     Dosage: 200 MG, 1X/DAY
     Route: 065
     Dates: start: 201710, end: 201710
  5. DOCETAXEL. [Suspect]
     Active Substance: DOCETAXEL
     Dosage: UNK
     Route: 065

REACTIONS (2)
  - Death [Fatal]
  - Pneumonia [Unknown]

NARRATIVE: CASE EVENT DATE: 201804
